FAERS Safety Report 9142779 (Version 1)
Quarter: 2013Q1

REPORT INFORMATION
  Report Type: Spontaneous
  Country: JP (occurrence: JP)
  Receive Date: 20130306
  Receipt Date: 20130306
  Transmission Date: 20140127
  Serious: Yes (Death)
  Sender: FDA-Public Use
  Company Number: JP-GENZYME-THYM-1003672

PATIENT
  Sex: Female
  Weight: 57 kg

DRUGS (1)
  1. THYMOGLOBULINE [Suspect]
     Indication: APLASTIC ANAEMIA
     Dosage: 213 MG, UNK
     Route: 042
     Dates: start: 20130218, end: 20130221

REACTIONS (1)
  - Death [Fatal]
